FAERS Safety Report 5428875-8 (Version None)
Quarter: 2007Q3

REPORT INFORMATION
  Report Type: 
  Country: None (occurrence: None)
  Receive Date: 20070824
  Receipt Date: 20070810
  Transmission Date: 20080115
  Serious: Yes (Life-Threatening, Other)
  Sender: FDA-Public Use
  Company Number: VER_00069_2007

PATIENT
  Sex: Female

DRUGS (2)
  1. EPINEPHERINE (TWINJECT) 0.3 MG [Suspect]
     Indication: ANAPHYLACTIC REACTION
     Dosage: 0.3 MG INTRAMUSCULAR/SUBCUTANEOUS
     Route: 030
  2. INSULIN [Concomitant]

REACTIONS (2)
  - DEVICE MALFUNCTION [None]
  - PHARMACEUTICAL PRODUCT COMPLAINT [None]
